FAERS Safety Report 7042114-6 (Version None)
Quarter: 2010Q4

REPORT INFORMATION
  Report Type: 
  Country: None (occurrence: None)
  Receive Date: 20101013
  Receipt Date: 20100226
  Transmission Date: 20110411
  Serious: No
  Sender: FDA-Public Use
  Company Number: US-ASTRAZENECA-2010SE08601

PATIENT
  Age: 49 Year
  Sex: Male
  Weight: 96.6 kg

DRUGS (4)
  1. SYMBICORT [Suspect]
     Indication: BRONCHITIS
     Dosage: TOTAL DAILY DOSE: 640 UG
     Route: 055
     Dates: start: 20100101, end: 20100201
  2. SYMBICORT [Suspect]
     Dosage: TOTAL DAILY DOSE: 640 UG
     Route: 055
     Dates: start: 20100201
  3. MUCINEX [Concomitant]
  4. VENTOLIN [Concomitant]
     Indication: BRONCHITIS

REACTIONS (5)
  - ACNE [None]
  - BRONCHITIS [None]
  - COUGH [None]
  - DRUG DOSE OMISSION [None]
  - DYSPNOEA [None]
